FAERS Safety Report 8250606-7 (Version None)
Quarter: 2012Q2

REPORT INFORMATION
  Report Type: 
  Country: None (occurrence: None)
  Receive Date: 20120402
  Receipt Date: 20120329
  Transmission Date: 20120825
  Serious: Yes (Other)
  Sender: FDA-Public Use
  Company Number: FI-ROCHE-1054775

PATIENT
  Age: 64 Year
  Sex: Female

DRUGS (4)
  1. XELODA [Suspect]
     Indication: COLORECTAL CANCER
     Dosage: 500 MG IN MORNING AND EVENING
     Route: 048
  2. OXALIPLATIN [Concomitant]
     Indication: COLORECTAL CANCER
     Route: 042
  3. XELODA [Suspect]
     Dosage: 2 TABLES IN MORNING AND EVENING
  4. XELODA [Suspect]
     Dosage: 3 TABLETS MORNING AND EVENING

REACTIONS (3)
  - FATIGUE [None]
  - DEPRESSION [None]
  - SUICIDAL IDEATION [None]
